FAERS Safety Report 15374293 (Version 1)
Quarter: 2018Q3

REPORT INFORMATION
  Report Type: Spontaneous
  Country: DE (occurrence: DE)
  Receive Date: 20180912
  Receipt Date: 20180912
  Transmission Date: 20181010
  Serious: Yes (Hospitalization)
  Sender: FDA-Public Use
  Company Number: DE-TORRENT-00009832

PATIENT
  Age: 74 Year
  Sex: Male

DRUGS (9)
  1. MIRTAZAPINE. [Suspect]
     Active Substance: MIRTAZAPINE
     Indication: MAJOR DEPRESSION
     Dosage: HIGH DOSE
  2. TRIIODOTHYRONINE [Suspect]
     Active Substance: LIOTHYRONINE SODIUM
     Indication: HYPOTHYROIDISM
     Dosage: DAILY DOSE: 75 MG MILLIGRAM(S) EVERY DAY
     Route: 048
  3. CARBAMAZEPINE. [Suspect]
     Active Substance: CARBAMAZEPINE
     Indication: BIPOLAR I DISORDER
     Dosage: 600 MG, QD
     Route: 065
  4. VENLAFAXINE [Suspect]
     Active Substance: VENLAFAXINE HYDROCHLORIDE
     Indication: MAJOR DEPRESSION
     Dosage: HIGH?DOSE TREATMENT
  5. FOKALEPSIN [Suspect]
     Active Substance: CARBAMAZEPINE
     Indication: DEPRESSION
     Dosage: 600 MG
     Route: 048
  6. LORAZEPAM. [Concomitant]
     Active Substance: LORAZEPAM
     Indication: DEPRESSION
     Dosage: DAILY DOSE: 0.5 MG MILLIGRAM(S) EVERY DAY
     Route: 048
  7. LIOTHYRONE [Concomitant]
     Indication: PRODUCT USED FOR UNKNOWN INDICATION
     Dosage: UNKNOWN
  8. CLOMIPRAMINE [Suspect]
     Active Substance: CLOMIPRAMINE
     Indication: MAJOR DEPRESSION
     Dosage: DAILY DOSE: 175 MG MILLIGRAM(S) EVERY DAY
     Route: 048
  9. SERTRALINE [Suspect]
     Active Substance: SERTRALINE HYDROCHLORIDE
     Indication: MAJOR DEPRESSION
     Dosage: HIGH?DOSE

REACTIONS (20)
  - Major depression [Unknown]
  - Pressure of speech [Recovered/Resolved]
  - Speech disorder [Recovered/Resolved]
  - Drug withdrawal syndrome [Recovered/Resolved]
  - Mania [Recovered/Resolved]
  - Incoherent [Recovered/Resolved]
  - Insomnia [Recovered/Resolved]
  - Loose associations [Recovered/Resolved]
  - Delusion [Recovered/Resolved]
  - Mood altered [Recovered/Resolved]
  - Asthenia [Unknown]
  - Liver function test abnormal [Unknown]
  - Depression [Recovered/Resolved]
  - Psychomotor hyperactivity [Recovered/Resolved]
  - Feelings of worthlessness [Unknown]
  - Psychomotor retardation [Unknown]
  - Anhedonia [Unknown]
  - Bipolar disorder [Recovered/Resolved]
  - Drug ineffective [Recovered/Resolved]
  - Rebound effect [Recovered/Resolved]
